FAERS Safety Report 20245587 (Version 2)
Quarter: 2021Q4

REPORT INFORMATION
  Report Type: Spontaneous
  Country: US (occurrence: US)
  Receive Date: 20211229
  Receipt Date: 20211230
  Transmission Date: 20220303
  Serious: Yes (Other)
  Sender: FDA-Public Use
  Company Number: US-CELGENE-USA-20211207964

PATIENT
  Sex: Female
  Weight: 56.296 kg

DRUGS (2)
  1. REVLIMID [Suspect]
     Active Substance: LENALIDOMIDE
     Indication: Plasma cell myeloma
     Dosage: 5 MILLIGRAM
     Route: 048
     Dates: start: 201907
  2. REVLIMID [Suspect]
     Active Substance: LENALIDOMIDE
     Dosage: 2.5 MILLIGRAM
     Route: 048
     Dates: start: 20211124

REACTIONS (10)
  - Subdural haematoma [Unknown]
  - Clostridium difficile infection [Unknown]
  - Eye disorder [Unknown]
  - Amnesia [Unknown]
  - Unevaluable event [Unknown]
  - Communication disorder [Unknown]
  - Vision blurred [Unknown]
  - Fall [Unknown]
  - Headache [Unknown]
  - Dizziness [Unknown]
